FAERS Safety Report 6128255-6 (Version None)
Quarter: 2009Q1

REPORT INFORMATION
  Report Type: 
  Country: None (occurrence: None)
  Receive Date: 20090319
  Receipt Date: 20090305
  Transmission Date: 20090719
  Serious: Yes (Death)
  Sender: FDA-Public Use
  Company Number: 1-17769174

PATIENT
  Age: 33 Year
  Sex: Female

DRUGS (1)
  1. DYNACIN [Suspect]

REACTIONS (6)
  - DRUG RASH WITH EOSINOPHILIA AND SYSTEMIC SYMPTOMS [None]
  - HEPATITIS [None]
  - HUMAN HERPESVIRUS 6 INFECTION [None]
  - MULTI-ORGAN FAILURE [None]
  - MYOCARDITIS [None]
  - PNEUMONITIS [None]
